FAERS Safety Report 9268824 (Version 2)
Quarter: 2013Q2

REPORT INFORMATION
  Report Type: Spontaneous
  Country: US (occurrence: US)
  Receive Date: 20130502
  Receipt Date: 20130605
  Transmission Date: 20140414
  Serious: Yes (Hospitalization)
  Sender: FDA-Public Use
  Company Number: US-009507513-1305USA000586

PATIENT
  Age: 65 Year
  Sex: Female

DRUGS (3)
  1. SINEMET [Suspect]
     Indication: PARKINSON^S DISEASE
     Dosage: 25-100 MG, 8 TIMES A DAY
     Route: 048
     Dates: start: 1995, end: 201303
  2. CARBIDOPA (+) LEVODOPA [Suspect]
     Dosage: 50/200 MG (TWO TABLETS), Q3H WHILE AWAKE
     Route: 048
  3. CARBIDOPA (+) LEVODOPA [Suspect]
     Route: 048

REACTIONS (3)
  - Reaction to azo-dyes [Not Recovered/Not Resolved]
  - Prescribed overdose [Unknown]
  - Incorrect dose administered [Unknown]
